FAERS Safety Report 4424363-6 (Version None)
Quarter: 2004Q3

REPORT INFORMATION
  Report Type: 
  Country: None (occurrence: None)
  Receive Date: 20040715
  Receipt Date: 20040503
  Transmission Date: 20050211
  Serious: Yes (Hospitalization)
  Sender: FDA-Public Use
  Company Number: 2004208962US

PATIENT
  Age: 84 Year
  Sex: Female

DRUGS (4)
  1. CELEBREX [Suspect]
     Indication: ARTHRALGIA
     Dosage: 200 MG, QD,; 100 MG,
     Dates: start: 20030101
  2. LOTREL [Concomitant]
  3. VITAMINS NOS (VITAMINS NOS) [Concomitant]
  4. TYLENOL W/ CODEINE [Concomitant]

REACTIONS (1)
  - ABDOMINAL PAIN UPPER [None]
